FAERS Safety Report 7716696-2 (Version None)
Quarter: 2011Q3

REPORT INFORMATION
  Report Type: 
  Country: None (occurrence: None)
  Receive Date: 20110829
  Receipt Date: 20110818
  Transmission Date: 20111222
  Serious: Yes (Other)
  Sender: FDA-Public Use
  Company Number: ES-ASTRAZENECA-2011SE49749

PATIENT

DRUGS (2)
  1. PROPOFOL [Suspect]
     Indication: ANAESTHESIA
     Dosage: 0.5MG/KG
     Route: 042
  2. PROPOFOL [Suspect]
     Dosage: 2-5 MG/KG/H
     Route: 042

REACTIONS (3)
  - BRADYCARDIA [None]
  - OXYGEN SATURATION DECREASED [None]
  - HYPOTENSION [None]
